FAERS Safety Report 7248771-3 (Version None)
Quarter: 2011Q1

REPORT INFORMATION
  Report Type: 
  Country: None (occurrence: None)
  Receive Date: 20110121
  Receipt Date: 20110121
  Transmission Date: 20110831
  Serious: Yes (Life-Threatening)
  Sender: FDA-Public Use
  Company Number: None

PATIENT
  Sex: Female
  Weight: 114.76 kg

DRUGS (1)
  1. PROPOXYPHENE HCL AND ACETAMINOPHEN [Suspect]
     Indication: PROCEDURAL PAIN
     Dosage: EVERY SIX HOUR
     Dates: end: 20101201

REACTIONS (4)
  - HYPERHIDROSIS [None]
  - HEART RATE INCREASED [None]
  - HEADACHE [None]
  - ABDOMINAL PAIN UPPER [None]
